FAERS Safety Report 9302773 (Version 8)
Quarter: 2013Q3

REPORT INFORMATION
  Report Type: Spontaneous
  Country: US (occurrence: US)
  Receive Date: 20130522
  Receipt Date: 20130916
  Transmission Date: 20140515
  Serious: Yes (Other)
  Sender: FDA-Public Use
  Company Number: US-VERTEX PHARMACEUTICALS INC-2013-006250

PATIENT
  Age: 65 Year
  Sex: Male
  Weight: 84 kg

DRUGS (8)
  1. INCIVEK [Suspect]
     Indication: HEPATITIS C
     Dosage: 750 MG, TID
     Route: 048
     Dates: start: 20130514, end: 20130805
  2. PEGASYS [Suspect]
     Indication: HEPATITIS C
     Dosage: 180 ?G, QW
     Route: 058
     Dates: start: 20130514
  3. RIBAVIRIN [Suspect]
     Indication: HEPATITIS C
     Dosage: 600 MG, BID
     Route: 048
     Dates: start: 20130514
  4. RIBAVIRIN [Suspect]
     Dosage: 200MG AM, 400MG PM
     Route: 048
     Dates: start: 20130529
  5. RIBAVIRIN [Suspect]
     Dosage: 200 MG, QD
     Route: 048
     Dates: start: 20130708
  6. LUPRON [Concomitant]
     Indication: PROSTATE CANCER
     Dosage: Q 3 MO
     Route: 042
  7. CASODEX [Concomitant]
     Indication: PROSTATE CANCER
     Dosage: 500 MG, QD
  8. ZOMETA [Concomitant]
     Indication: BONE DISORDER
     Dosage: Q MONTH

REACTIONS (14)
  - Anaemia [Recovered/Resolved]
  - Dizziness [Unknown]
  - Dyspnoea [Not Recovered/Not Resolved]
  - Vision blurred [Not Recovered/Not Resolved]
  - Parosmia [Not Recovered/Not Resolved]
  - Pallor [Not Recovered/Not Resolved]
  - Decreased appetite [Recovered/Resolved]
  - Weight decreased [Not Recovered/Not Resolved]
  - Drug dose omission [Recovered/Resolved]
  - Fatigue [Recovered/Resolved]
  - Asthenia [Unknown]
  - Rash pruritic [Not Recovered/Not Resolved]
  - Anal pruritus [Not Recovered/Not Resolved]
  - Dysgeusia [Recovered/Resolved]
